FAERS Safety Report 23924248 (Version 1)
Quarter: 2024Q2

REPORT INFORMATION
  Report Type: Spontaneous
  Country: US (occurrence: US)
  Receive Date: 20240531
  Receipt Date: 20240531
  Transmission Date: 20240716
  Serious: No
  Sender: FDA-Public Use
  Company Number: US-BRISTOL-MYERS SQUIBB COMPANY-2024-074103

PATIENT
  Age: 62 Year
  Sex: Male

DRUGS (4)
  1. ELIQUIS [Suspect]
     Active Substance: APIXABAN
     Indication: Atrial fibrillation
     Dosage: TAKE 2 TABLETS (10 MG TOTAL) BY MOUTH 2 (TWO) TIMES DAILY FOR 5 DAYS, THEN 1 TABLET (5 MG TOTAL) 2 (
     Route: 048
  2. ELIQUIS [Suspect]
     Active Substance: APIXABAN
     Indication: Pulmonary embolism
     Dosage: TAKE 2 TABLETS (10 MG TOTAL) BY MOUTH 2 (TWO) TIMES DAILY FOR 5 DAYS, THEN 1 TABLET (5 MG TOTAL) 2 (
     Route: 048
  3. VYNDAMAX [Suspect]
     Active Substance: TAFAMIDIS
     Indication: Product used for unknown indication
     Route: 048
  4. PANTOPRAZOLE [Concomitant]
     Active Substance: PANTOPRAZOLE
     Indication: Product used for unknown indication
     Dosage: TAKE 1 TABLET (40 MG TOTAL) BY MOUTH DAILY BEFORE MEAL
     Route: 048
     Dates: start: 20240417

REACTIONS (1)
  - Off label use [Unknown]
